FAERS Safety Report 23365246 (Version 1)
Quarter: 2024Q1

REPORT INFORMATION
  Report Type: Spontaneous
  Country: None (occurrence: CN)
  Receive Date: 20240104
  Receipt Date: 20240104
  Transmission Date: 20240410
  Serious: Yes (Hospitalization)
  Sender: FDA-Public Use
  Company Number: CN-Jiangsu Hansoh Pharmaceutical Co., Ltd-2150151

PATIENT
  Age: 69 Year
  Sex: Male
  Weight: 53 kg

DRUGS (2)
  1. PEMETREXED [Suspect]
     Active Substance: PEMETREXED
     Indication: Lung adenocarcinoma
     Route: 041
     Dates: start: 20231120, end: 20231120
  2. CARBOPLATIN [Suspect]
     Active Substance: CARBOPLATIN
     Route: 041
     Dates: start: 20231120, end: 20231120

REACTIONS (4)
  - Platelet count decreased [Recovered/Resolved]
  - Decreased appetite [Unknown]
  - Asthenia [Unknown]
  - Oral pain [Unknown]

NARRATIVE: CASE EVENT DATE: 20231206
